FAERS Safety Report 15905581 (Version 2)
Quarter: 2019Q1

REPORT INFORMATION
  Report Type: Report from Study
  Country: US (occurrence: US)
  Receive Date: 20190204
  Receipt Date: 20190301
  Transmission Date: 20190417
  Serious: Yes (Hospitalization)
  Sender: FDA-Public Use
  Company Number: US-ROCHE-2159526

PATIENT
  Age: 59 Year
  Sex: Female
  Weight: 79.3 kg

DRUGS (22)
  1. TYLENOL [Concomitant]
     Active Substance: ACETAMINOPHEN
  2. ALLOPURINOL. [Concomitant]
     Active Substance: ALLOPURINOL
  3. NEURONTIN [Concomitant]
     Active Substance: GABAPENTIN
  4. GLUCOPHAGE [Concomitant]
     Active Substance: METFORMIN HYDROCHLORIDE
  5. SUCRALFATE. [Concomitant]
     Active Substance: SUCRALFATE
  6. ATEZOLIZUMAB. [Suspect]
     Active Substance: ATEZOLIZUMAB
     Indication: DIFFUSE LARGE B-CELL LYMPHOMA REFRACTORY
     Route: 042
     Dates: start: 20180710, end: 20180710
  7. CYCLOPHOSPHAMIDE. [Suspect]
     Active Substance: CYCLOPHOSPHAMIDE
     Indication: DIFFUSE LARGE B-CELL LYMPHOMA REFRACTORY
     Route: 042
     Dates: start: 20180704, end: 20180706
  8. MAGNESIUM SULPHATE [Concomitant]
     Active Substance: MAGNESIUM SULFATE
  9. LEVAQUIN [Concomitant]
     Active Substance: LEVOFLOXACIN
  10. LEVAQUIN [Concomitant]
     Active Substance: LEVOFLOXACIN
  11. NEUPOGEN [Concomitant]
     Active Substance: FILGRASTIM
  12. FLUDARABINE [Suspect]
     Active Substance: FLUDARABINE PHOSPHATE
     Indication: DIFFUSE LARGE B-CELL LYMPHOMA REFRACTORY
     Route: 042
     Dates: start: 20180704, end: 20180706
  13. ZOVIRAX [Concomitant]
     Active Substance: ACYCLOVIR
  14. COLACE [Concomitant]
     Active Substance: DOCUSATE SODIUM
  15. PEPCID (UNITED STATES) [Concomitant]
  16. AXICABTAGENE CILOLEUCEL [Suspect]
     Active Substance: AXICABTAGENE CILOLEUCEL
     Indication: DIFFUSE LARGE B-CELL LYMPHOMA REFRACTORY
     Dosage: ONCE
     Route: 042
     Dates: start: 20180709, end: 20180709
  17. ZOFRAN [Concomitant]
     Active Substance: ONDANSETRON HYDROCHLORIDE
  18. PROTONIX [Concomitant]
     Active Substance: PANTOPRAZOLE SODIUM
  19. INSULIN [Concomitant]
     Active Substance: INSULIN NOS
  20. KEPPRA [Concomitant]
     Active Substance: LEVETIRACETAM
  21. BENADRYL + DYCLONE MOUTHRINSE [Concomitant]
     Active Substance: DIPHENHYDRAMINE HYDROCHLORIDE\DYCLONINE HYDROCHLORIDE
  22. HUMULIN R [Concomitant]
     Active Substance: INSULIN HUMAN

REACTIONS (3)
  - Upper respiratory tract infection [Recovered/Resolved]
  - Cytokine release syndrome [Recovered/Resolved]
  - Sinusitis [Recovering/Resolving]

NARRATIVE: CASE EVENT DATE: 20180710
